FAERS Safety Report 5989327-X (Version None)
Quarter: 2008Q4

REPORT INFORMATION
  Report Type: 
  Country: None (occurrence: None)
  Receive Date: 20081205
  Receipt Date: 20081120
  Transmission Date: 20090506
  Serious: Yes (Other)
  Sender: FDA-Public Use
  Company Number: 2008S1020921

PATIENT
  Age: 2 Year
  Sex: Female

DRUGS (1)
  1. LISINOPRIL [Suspect]
     Indication: DRUG USE FOR UNKNOWN INDICATION
     Dosage: 50 MG;ONCE

REACTIONS (2)
  - ACCIDENTAL EXPOSURE [None]
  - ADVERSE DRUG REACTION [None]
